FAERS Safety Report 5040663-3 (Version None)
Quarter: 2006Q2

REPORT INFORMATION
  Report Type: 
  Country: None (occurrence: None)
  Receive Date: 20060629
  Receipt Date: 20060629
  Transmission Date: 20061013
  Serious: Yes (Life-Threatening, Hospitalization, Disabling)
  Sender: FDA-Public Use
  Company Number: None

PATIENT
  Age: 78 Year
  Sex: Female
  Weight: 35 kg

DRUGS (3)
  1. BOTOX - PROCEDURE DONE AT ANOTHER FACILITY [Suspect]
     Indication: OESOPHAGEAL ACHALASIA
     Dosage: ? DOSE  SINGLE DOSE INJ LES
     Dates: start: 20060511
  2. MIDAZOLEN [Concomitant]
  3. FENTANYL TRANSDERMAL SYSTEM [Concomitant]

REACTIONS (4)
  - CEREBROVASCULAR ACCIDENT [None]
  - HEMIPARESIS [None]
  - LEFT VENTRICULAR FAILURE [None]
  - MYOCARDIAL INFARCTION [None]
